FAERS Safety Report 15936507 (Version 1)
Quarter: 2019Q1

REPORT INFORMATION
  Report Type: Spontaneous
  Country: US (occurrence: US)
  Receive Date: 20190207
  Receipt Date: 20190207
  Transmission Date: 20190417
  Serious: Yes (Disabling, Other)
  Sender: FDA-Public Use
  Company Number: None

PATIENT
  Age: 36 Year
  Sex: Female
  Weight: 74.7 kg

DRUGS (1)
  1. LAMOTRIGINE. [Suspect]
     Active Substance: LAMOTRIGINE
     Indication: BIPOLAR DISORDER
     Route: 048
     Dates: start: 20170920, end: 20190104

REACTIONS (10)
  - Arthralgia [None]
  - Contusion [None]
  - Joint swelling [None]
  - Rash [None]
  - Nervous system disorder [None]
  - Fatigue [None]
  - Seizure [None]
  - Headache [None]
  - Blindness transient [None]
  - Haemorrhage [None]

NARRATIVE: CASE EVENT DATE: 20181208
